FAERS Safety Report 7721609-3 (Version None)
Quarter: 2011Q3

REPORT INFORMATION
  Report Type: 
  Country: None (occurrence: None)
  Receive Date: 20110831
  Receipt Date: 20110822
  Transmission Date: 20111222
  Serious: Yes (Other)
  Sender: FDA-Public Use
  Company Number: GB-TEVA-287884ISR

PATIENT
  Age: 59 Year
  Sex: Male

DRUGS (2)
  1. OLANZAPINE [Suspect]
     Indication: PSYCHOTIC DISORDER
     Dates: start: 20110301, end: 20110301
  2. RISPERIDONE [Suspect]
     Indication: PSYCHOTIC DISORDER
     Route: 048
     Dates: start: 20101001, end: 20110101

REACTIONS (2)
  - PANIC ATTACK [None]
  - DIPLOPIA [None]
